FAERS Safety Report 8463461-7 (Version None)
Quarter: 2012Q2

REPORT INFORMATION
  Report Type: 
  Country: None (occurrence: None)
  Receive Date: 20120625
  Receipt Date: 20120619
  Transmission Date: 20120825
  Serious: Yes (Death, Hospitalization)
  Sender: FDA-Public Use
  Company Number: FR-PFIZER INC-2012129869

PATIENT
  Age: 71 Year
  Sex: Female

DRUGS (14)
  1. ACETAMINOPHEN [Concomitant]
     Dosage: 1 G, UNK
  2. OFLOXACIN [Concomitant]
  3. PREDNISOLONE [Concomitant]
  4. KETOPROFEN [Concomitant]
  5. SUTENT [Suspect]
     Indication: RENAL CANCER
     Dosage: 50 MG, 1X/DAY
     Dates: start: 20090619
  6. MODANE [Concomitant]
  7. DURAGESIC-100 [Concomitant]
  8. KETAMINE [Concomitant]
  9. ORBENIN CAP [Concomitant]
     Dosage: 500 MG, UNK
  10. CLONAZEPAM [Concomitant]
  11. SUTENT [Suspect]
     Dosage: 50 MG, 1X/DAY
     Dates: start: 20090803, end: 20090812
  12. OMEPRAZOLE [Concomitant]
     Dosage: 20 MG, UNK
  13. LYRICA [Concomitant]
  14. POLYETHYLENE GLYCOL [Concomitant]

REACTIONS (4)
  - PARAPARESIS [None]
  - CAUDA EQUINA SYNDROME [None]
  - GASTROINTESTINAL HAEMORRHAGE [None]
  - BACK PAIN [None]
